FAERS Safety Report 15838806 (Version 1)
Quarter: 2019Q1

REPORT INFORMATION
  Report Type: Spontaneous
  Country: US (occurrence: US)
  Receive Date: 20190117
  Receipt Date: 20190117
  Transmission Date: 20190417
  Serious: No
  Sender: FDA-Public Use
  Company Number: US-TEVA-2018-US-993170

PATIENT
  Sex: Female

DRUGS (1)
  1. GUAIFENESIN W/PSEUDOEPHEDRINE [Suspect]
     Active Substance: GUAIFENESIN\PSEUDOEPHEDRINE HYDROCHLORIDE
     Indication: PARANASAL SINUS DISCOMFORT
     Dosage: PSEUDOEPHEDRINE HYDROCHLORIDE 60 MG, GUAIFENESIN 600 MG?1 DOSAGE FORM: 2 TABLETS
     Route: 048
     Dates: start: 20181217, end: 20181218

REACTIONS (1)
  - Drug ineffective [Unknown]
